FAERS Safety Report 7150582-4 (Version None)
Quarter: 2010Q4

REPORT INFORMATION
  Report Type: 
  Country: None (occurrence: None)
  Receive Date: 20101206
  Receipt Date: 20101206
  Transmission Date: 20110411
  Serious: Yes (Life-Threatening)
  Sender: FDA-Public Use
  Company Number: None

PATIENT
  Age: 54 Year
  Sex: Male
  Weight: 85 kg

DRUGS (1)
  1. HYDROCHLOROTHIAZIDE/LISINOPRIL 12.5MG /10 MG [Suspect]
     Indication: HYPERTENSION

REACTIONS (1)
  - LIP SWELLING [None]
